FAERS Safety Report 12974575 (Version 2)
Quarter: 2016Q4

REPORT INFORMATION
  Report Type: Report from Study
  Country: CN (occurrence: CN)
  Receive Date: 20161125
  Receipt Date: 20161129
  Transmission Date: 20170207
  Serious: Yes (Hospitalization)
  Sender: FDA-Public Use
  Company Number: CN-ROCHE-1854262

PATIENT
  Age: 60 Year
  Sex: Male
  Weight: 75 kg

DRUGS (16)
  1. CISPLATIN. [Suspect]
     Active Substance: CISPLATIN
     Indication: HER-2 POSITIVE GASTRIC CANCER
     Dosage: ON 21/SEP/2015, THE PATIENT RECEIVED THE MOST RECENT DOSE (111 MG) OF CISPLATIN PRIOR TO ONSET OF TH
     Route: 042
     Dates: start: 20150514
  2. PERTUZUMAB [Suspect]
     Active Substance: PERTUZUMAB
     Indication: HER-2 POSITIVE GASTRIC CANCER
     Dosage: ON 20/OCT/2016, THE PATIENT RECEIVED THE MOST RECENT DOSE OF PERTUZUMAB PRIOR TO ONSET OF THE EVENT
     Route: 042
     Dates: start: 20150514, end: 20161111
  3. LIDOCAINE HYDROCHLORIDE. [Concomitant]
     Active Substance: LIDOCAINE HYDROCHLORIDE
     Route: 058
     Dates: start: 20161117, end: 20161117
  4. HERBAL NOS [Concomitant]
     Active Substance: HERBALS
     Route: 042
     Dates: start: 20161110
  5. POLYETHYLENE GLYCOL-ELECTROLYTE [Concomitant]
     Indication: CONSTIPATION PROPHYLAXIS
     Route: 048
     Dates: start: 20161111, end: 20161114
  6. MECOBALAMINE [Concomitant]
     Route: 042
     Dates: start: 20160901
  7. CAPECITABINE. [Suspect]
     Active Substance: CAPECITABINE
     Indication: HER-2 POSITIVE GASTRIC CANCER
     Dosage: ON 21/SEP/2015, THE PATIENT RECEIVED THE MOST RECENT DOSE (1300 MG) OF CAPECITABINE PRIOR TO ONSET O
     Route: 048
     Dates: start: 20150514
  8. PHENOBARBITAL. [Concomitant]
     Active Substance: PHENOBARBITAL
     Route: 030
     Dates: start: 20161117, end: 20161117
  9. METOCLOPRAMIDE. [Concomitant]
     Active Substance: METOCLOPRAMIDE
     Indication: PROPHYLAXIS OF NAUSEA AND VOMITING
     Route: 048
     Dates: start: 20150519
  10. NIFEDIPINE. [Concomitant]
     Active Substance: NIFEDIPINE
     Indication: HYPERTENSION
     Route: 048
     Dates: start: 20110515
  11. MEGESTROL ACETATE. [Concomitant]
     Active Substance: MEGESTROL ACETATE
     Route: 048
     Dates: start: 20150519
  12. POTASSIUM CHLORIDE. [Concomitant]
     Active Substance: POTASSIUM CHLORIDE
     Route: 042
     Dates: start: 20161110
  13. ATROPINE. [Concomitant]
     Active Substance: ATROPINE
     Route: 030
     Dates: start: 20161117, end: 20161117
  14. ACARBOSE. [Concomitant]
     Active Substance: ACARBOSE
     Indication: DIABETES MELLITUS
     Route: 048
     Dates: start: 20161112
  15. TRASTUZUMAB [Suspect]
     Active Substance: TRASTUZUMAB
     Indication: HER-2 POSITIVE GASTRIC CANCER
     Dosage: ON 20/OCT/2016, THE PATIENT RECEIVED THE MOST RECENT DOSE (450 MG) OF TRASTUZUMAB PRIOR TO ONSET OF
     Route: 042
     Dates: start: 20150514, end: 20161111
  16. PANTOPRAZOLE [Concomitant]
     Active Substance: PANTOPRAZOLE SODIUM
     Route: 042
     Dates: start: 20161110

REACTIONS (2)
  - Hepatic function abnormal [Recovering/Resolving]
  - Hyperbilirubinaemia [Recovering/Resolving]

NARRATIVE: CASE EVENT DATE: 20161110
